FAERS Safety Report 12240796 (Version 1)
Quarter: 2016Q2

REPORT INFORMATION
  Report Type: Report from Study
  Country: AR (occurrence: AR)
  Receive Date: 20160406
  Receipt Date: 20160406
  Transmission Date: 20160815
  Serious: Yes (Other)
  Sender: FDA-Public Use
  Company Number: AR-ROCHE-1631547

PATIENT
  Age: 52 Year
  Sex: Female

DRUGS (4)
  1. XOLAIR [Suspect]
     Active Substance: OMALIZUMAB
     Dosage: 5 DF (150 MG), QMO
     Route: 065
  2. DELTASONE (PREDNISONE) [Concomitant]
  3. SERETIDE [Concomitant]
     Active Substance: FLUTICASONE PROPIONATE\SALMETEROL XINAFOATE
  4. XOLAIR [Suspect]
     Active Substance: OMALIZUMAB
     Indication: ASTHMA
     Route: 065

REACTIONS (7)
  - Swelling face [Recovered/Resolved]
  - Urticaria [Not Recovered/Not Resolved]
  - Asthma [Unknown]
  - Rhinitis [Recovered/Resolved]
  - Pruritus [Not Recovered/Not Resolved]
  - Eye swelling [Recovered/Resolved]
  - Hypersensitivity [Not Recovered/Not Resolved]

NARRATIVE: CASE EVENT DATE: 20150810
